FAERS Safety Report 5757507-4 (Version None)
Quarter: 2008Q2

REPORT INFORMATION
  Report Type: 
  Country: None (occurrence: None)
  Receive Date: 20080603
  Receipt Date: 20080527
  Transmission Date: 20081010
  Serious: Yes (Hospitalization)
  Sender: FDA-Public Use
  Company Number: IT-PFIZER INC-2008045249

PATIENT
  Age: 59 Year
  Sex: Female
  Weight: 96 kg

DRUGS (15)
  1. SU-011,248 [Suspect]
     Indication: BREAST CANCER METASTATIC
     Route: 048
     Dates: start: 20080520, end: 20080523
  2. XELODA [Suspect]
     Indication: BREAST CANCER METASTATIC
     Route: 048
     Dates: start: 20080319, end: 20080421
  3. PREGABALIN [Concomitant]
     Route: 048
  4. GLYBURIDE [Concomitant]
     Indication: DIABETES MELLITUS
     Route: 048
  5. INSULIN [Concomitant]
     Indication: DIABETES MELLITUS
     Route: 058
  6. ATENOLOL [Concomitant]
     Indication: HYPERTENSION
     Route: 048
  7. RABEPRAZOLE SODIUM [Concomitant]
     Route: 048
  8. BUPRENORPHINE HCL [Concomitant]
     Route: 062
  9. ASPIRIN [Concomitant]
     Route: 048
  10. ATORVASTATIN [Concomitant]
     Indication: HYPERCHOLESTEROLAEMIA
     Route: 048
  11. SELEPARINA [Concomitant]
     Route: 058
  12. NIMESULIDE [Concomitant]
     Route: 048
  13. MACROGOL [Concomitant]
     Route: 048
  14. QUINAPRIL [Concomitant]
     Indication: HYPERTENSION
     Route: 048
  15. MORPHINE [Concomitant]
     Route: 058
     Dates: start: 20080415, end: 20080415

REACTIONS (2)
  - CHEST PAIN [None]
  - VOMITING [None]
